FAERS Safety Report 25780656 (Version 2)
Quarter: 2025Q4

REPORT INFORMATION
  Report Type: Spontaneous
  Country: US (occurrence: US)
  Receive Date: 20250909
  Receipt Date: 20251006
  Transmission Date: 20260117
  Serious: No
  Sender: ABBVIE
  Company Number: US-ABBVIE-6446970

PATIENT
  Age: 60 Year
  Sex: Female
  Weight: 61.234 kg

DRUGS (16)
  1. LEVOTHYROXINE [Suspect]
     Active Substance: LEVOTHYROXINE
     Indication: Hypothyroidism
     Dosage: FORM STRENGTH: 25 MICROGRAM
     Route: 048
     Dates: start: 20250326, end: 20250407
  2. SELENIUM [Concomitant]
     Active Substance: SELENIUM
     Indication: Product used for unknown indication
  3. Calcium complex [Concomitant]
     Indication: Product used for unknown indication
  4. HERBALS\WITHANIA SOMNIFERA ROOT [Concomitant]
     Active Substance: HERBALS\WITHANIA SOMNIFERA ROOT
     Indication: Product used for unknown indication
     Dosage: HERBAL TEA
  5. Holy basil [Concomitant]
     Indication: Product used for unknown indication
  6. VITAMIN B1 [Concomitant]
     Active Substance: THIAMINE HYDROCHLORIDE
     Indication: Product used for unknown indication
  7. METHYLPHENIDATE [Concomitant]
     Active Substance: METHYLPHENIDATE
     Indication: Product used for unknown indication
  8. LITHIUM [Concomitant]
     Active Substance: LITHIUM
     Indication: Product used for unknown indication
     Dosage: LITHIUM DIRECT RELEASE
  9. CHONDROITIN SULFATE (BOVINE)\GLUCOSAMINE SULFATE [Concomitant]
     Active Substance: CHONDROITIN SULFATE (BOVINE)\GLUCOSAMINE SULFATE
     Indication: Product used for unknown indication
     Dosage: OSTEO PX
  10. BIOTIN [Concomitant]
     Active Substance: BIOTIN
     Indication: Product used for unknown indication
  11. BERBERINE [Concomitant]
     Active Substance: BERBERINE
     Indication: Product used for unknown indication
  12. CHOLINE [Concomitant]
     Active Substance: CHOLINE
     Indication: Product used for unknown indication
  13. QUINIDINE [Concomitant]
     Active Substance: QUINIDINE
     Indication: Product used for unknown indication
  14. VITAMIN B COMPLEX [Concomitant]
     Active Substance: CYANOCOBALAMIN\DEXPANTHENOL\NIACINAMIDE\PYRIDOXINE HYDROCHLORIDE\RIBOFLAVIN 5^-PHOSPHATE SODIUM\THIA
     Indication: Product used for unknown indication
  15. FOLATE SODIUM [Concomitant]
     Active Substance: FOLATE SODIUM
     Indication: Product used for unknown indication
  16. ZINC [Concomitant]
     Active Substance: ZINC
     Indication: Product used for unknown indication
     Dosage: ZINC PRIMER

REACTIONS (19)
  - Loss of personal independence in daily activities [Recovering/Resolving]
  - Hypothyroidism [Recovering/Resolving]
  - Drug ineffective [Not Recovered/Not Resolved]
  - Product dispensing error [Unknown]
  - Low density lipoprotein increased [Recovering/Resolving]
  - Haematocrit increased [Unknown]
  - High density lipoprotein decreased [Recovering/Resolving]
  - Blood thyroid stimulating hormone increased [Recovering/Resolving]
  - Emotional distress [Recovering/Resolving]
  - Blood triglycerides increased [Recovering/Resolving]
  - Haemoglobin increased [Unknown]
  - Blood cholesterol increased [Recovering/Resolving]
  - Mean cell volume increased [Unknown]
  - Fatigue [Recovering/Resolving]
  - Non-high-density lipoprotein cholesterol increased [Recovering/Resolving]
  - Disturbance in attention [Recovering/Resolving]
  - Mean cell haemoglobin increased [Recovering/Resolving]
  - Mobility decreased [Recovering/Resolving]
  - Stress [Recovering/Resolving]

NARRATIVE: CASE EVENT DATE: 20250301
